FAERS Safety Report 8473875-7 (Version None)
Quarter: 2012Q2

REPORT INFORMATION
  Report Type: 
  Country: None (occurrence: None)
  Receive Date: 20120628
  Receipt Date: 20120109
  Transmission Date: 20120825
  Serious: Yes (Death)
  Sender: FDA-Public Use
  Company Number: US-MYLANLABS-2012S1000611

PATIENT
  Age: 62 Year
  Sex: Male

DRUGS (4)
  1. LORTAB [Concomitant]
  2. CLOZAPINE [Suspect]
     Indication: SCHIZOPHRENIA
     Route: 048
  3. LITHIUM CARBONATE [Concomitant]
  4. CLONAZEPAM [Concomitant]

REACTIONS (1)
  - DEATH [None]
